FAERS Safety Report 17829957 (Version 1)
Quarter: 2020Q2

REPORT INFORMATION
  Report Type: Spontaneous
  Country: FR (occurrence: FR)
  Receive Date: 20200527
  Receipt Date: 20200527
  Transmission Date: 20200714
  Serious: Yes (Other)
  Sender: FDA-Public Use
  Company Number: FR-MYLANLABS-2020M1051333

PATIENT
  Age: 13 Year
  Sex: Male
  Weight: 35 kg

DRUGS (5)
  1. MICROPAKINE [Suspect]
     Active Substance: VALPROATE SODIUM
     Indication: EPILEPSY
     Dosage: 350 MG MATIN, 500 MG SOIR
     Route: 048
     Dates: start: 20160909
  2. CALCIDOSE                          /07357001/ [Suspect]
     Active Substance: CALCIUM CARBONATE
     Indication: OSTEOPOROSIS
     Dosage: UNK
     Route: 048
  3. MACROGOL [Suspect]
     Active Substance: POLYETHYLENE GLYCOLS
     Indication: CONSTIPATION
     Dosage: UNK
     Route: 048
     Dates: start: 202003
  4. CONTRAMAL [Suspect]
     Active Substance: TRAMADOL HYDROCHLORIDE
     Indication: PAIN
     Dosage: UNK
     Route: 048
     Dates: start: 202003
  5. LOVENOX [Suspect]
     Active Substance: ENOXAPARIN SODIUM
     Indication: THROMBOSIS PROPHYLAXIS
     Dosage: 1 DOSAGE FORM, QD
     Route: 058
     Dates: start: 20200301

REACTIONS (1)
  - Coombs negative haemolytic anaemia [Recovering/Resolving]

NARRATIVE: CASE EVENT DATE: 20200309
